FAERS Safety Report 6355674-5 (Version None)
Quarter: 2009Q3

REPORT INFORMATION
  Report Type: 
  Country: None (occurrence: None)
  Receive Date: 20090910
  Receipt Date: 20090901
  Transmission Date: 20100115
  Serious: Yes (Life-Threatening)
  Sender: FDA-Public Use
  Company Number: 372265

PATIENT
  Age: 66 Year
  Sex: Female

DRUGS (1)
  1. PACLITAXEL [Suspect]
     Dosage: 280 MG, INTRAVENOUS
     Route: 042
     Dates: start: 20090827, end: 20090827

REACTIONS (2)
  - HYPOTENSION [None]
  - MALAISE [None]
